FAERS Safety Report 25000649 (Version 2)
Quarter: 2025Q1

REPORT INFORMATION
  Report Type: Spontaneous
  Country: US (occurrence: US)
  Receive Date: 20250222
  Receipt Date: 20250320
  Transmission Date: 20250408
  Serious: No
  Sender: SANOFI AVENTIS
  Company Number: US-SA-2025SA050273

PATIENT
  Age: 5 Year
  Sex: Male

DRUGS (1)
  1. DUPIXENT [Suspect]
     Active Substance: DUPILUMAB
     Indication: Dermatitis atopic
     Dosage: 300 MG, QOW
     Route: 058
     Dates: start: 20240911

REACTIONS (5)
  - Pharyngitis streptococcal [Unknown]
  - Pyrexia [Unknown]
  - Nasal congestion [Unknown]
  - Oropharyngeal pain [Unknown]
  - Dermatitis atopic [Unknown]

NARRATIVE: CASE EVENT DATE: 20250201
